FAERS Safety Report 9173200 (Version 2)
Quarter: 2013Q1

REPORT INFORMATION
  Report Type: Spontaneous
  Country: US (occurrence: None)
  Receive Date: 20130314
  Receipt Date: 20130328
  Transmission Date: 20140127
  Serious: Yes (Other)
  Sender: FDA-Public Use
  Company Number: AUR-APL-2013-02130

PATIENT
  Age: 63 Year
  Sex: Male
  Weight: 92.97 kg

DRUGS (7)
  1. VENLAFAXINE [Suspect]
     Indication: DEPRESSION
     Dates: start: 2010, end: 2013
  2. VENLAFAXINE [Suspect]
     Indication: ANXIETY
     Dates: start: 2010, end: 2013
  3. EFFEXOR XR [Suspect]
     Indication: DEPRESSION
     Route: 048
  4. EFFEXOR XR [Suspect]
     Indication: ANXIETY
     Route: 048
  5. LIPITOR (ATORVASTATIN CALCIUM) [Concomitant]
  6. ASPIRIN (ACETYLSALICYLIC ACID) [Concomitant]
  7. PRILOSEC [Concomitant]

REACTIONS (6)
  - Anxiety [None]
  - Suicidal ideation [None]
  - Suffocation feeling [None]
  - Feeling abnormal [None]
  - Feeling abnormal [None]
  - Product substitution issue [None]
